FAERS Safety Report 25312210 (Version 1)
Quarter: 2025Q2

REPORT INFORMATION
  Report Type: Spontaneous
  Country: US (occurrence: US)
  Receive Date: 20250510
  Receipt Date: 20250510
  Transmission Date: 20250717
  Serious: Yes (Hospitalization, Other)
  Sender: NOVO NORDISK
  Company Number: US-NOVOPROD-1418160

PATIENT
  Age: 73 Year
  Sex: Female

DRUGS (2)
  1. OZEMPIC [Suspect]
     Active Substance: SEMAGLUTIDE
  2. OZEMPIC [Suspect]
     Active Substance: SEMAGLUTIDE
     Indication: Obesity

REACTIONS (4)
  - Oral surgery [Not Recovered/Not Resolved]
  - Surgery [Not Recovered/Not Resolved]
  - Surgery [Not Recovered/Not Resolved]
  - Product use in unapproved indication [Unknown]
